FAERS Safety Report 15622220 (Version 1)
Quarter: 2018Q4

REPORT INFORMATION
  Report Type: Report from Study
  Country: RU (occurrence: RU)
  Receive Date: 20181115
  Receipt Date: 20181115
  Transmission Date: 20190205
  Serious: Yes (Death)
  Sender: FDA-Public Use
  Company Number: RU-TEVA-2018-RU-974024

PATIENT
  Age: 56 Year
  Sex: Female

DRUGS (4)
  1. ACYCLOVIR. [Concomitant]
     Active Substance: ACYCLOVIR
     Indication: PROPHYLAXIS
     Route: 048
  2. FLUDARABINE [Suspect]
     Active Substance: FLUDARABINE PHOSPHATE
     Indication: CHRONIC LYMPHOCYTIC LEUKAEMIA STAGE 2
     Dosage: FOR 3 DAYS FROM DAY 1 TO 3; MAXIMUM 6 CYCLES AND EACH CYCLE WAS REPEATED EVERY 28 DAYS
     Route: 042
  3. CYCLOPHOSPHAMIDE. [Suspect]
     Active Substance: CYCLOPHOSPHAMIDE
     Indication: CHRONIC LYMPHOCYTIC LEUKAEMIA STAGE 2
     Dosage: FOR 3 DAYS FROM DAY 1 TO 3; MAXIMUM 6 CYCLES AND EACH CYCLE WAS REPEATED EVERY 28 DAYS
     Route: 042
  4. TRIMETHOPRIM/SULFAMETHOXAZOLE [Concomitant]
     Active Substance: SULFAMETHOXAZOLE\TRIMETHOPRIM
     Indication: ANTIFUNGAL PROPHYLAXIS
     Dosage: THRICE WEEKLY
     Route: 065

REACTIONS (1)
  - Infection [Fatal]
